FAERS Safety Report 5468379-X (Version None)
Quarter: 2007Q3

REPORT INFORMATION
  Report Type: 
  Country: None (occurrence: None)
  Receive Date: 20070924
  Receipt Date: 20070912
  Transmission Date: 20080115
  Serious: Yes (Other)
  Sender: FDA-Public Use
  Company Number: E2090-00312-SPO-JP

PATIENT
  Age: 59 Year
  Sex: Male

DRUGS (1)
  1. ZONISAMIDE [Suspect]
     Dosage: ORAL
     Route: 048

REACTIONS (3)
  - DRUG HYPERSENSITIVITY [None]
  - HEPATIC FUNCTION ABNORMAL [None]
  - PYREXIA [None]
